FAERS Safety Report 4848622-8 (Version None)
Quarter: 2005Q4

REPORT INFORMATION
  Report Type: 
  Country: None (occurrence: None)
  Receive Date: 20051115
  Receipt Date: 20051007
  Transmission Date: 20060501
  Serious: Yes (Other)
  Sender: FDA-Public Use
  Company Number: 420654

PATIENT
  Age: 24 Year
  Sex: Female

DRUGS (2)
  1. PEGASYS [Suspect]
     Dosage: SUBCUTANEOUS
     Route: 058
     Dates: start: 20050901
  2. COPEGUS [Suspect]
     Dosage: ORAL
     Route: 048
     Dates: start: 20050901

REACTIONS (2)
  - FAECES DISCOLOURED [None]
  - HAEMATEMESIS [None]
